FAERS Safety Report 17447794 (Version 5)
Quarter: 2021Q2

REPORT INFORMATION
  Report Type: Report from Study
  Country: US (occurrence: US)
  Receive Date: 20200221
  Receipt Date: 20210410
  Transmission Date: 20210716
  Serious: No
  Sender: FDA-Public Use
  Company Number: NVSC2020US047942

PATIENT
  Sex: Female

DRUGS (1)
  1. COSENTYX [Suspect]
     Active Substance: SECUKINUMAB
     Indication: PRODUCT USED FOR UNKNOWN INDICATION
     Dosage: UNK
     Route: 065

REACTIONS (3)
  - Cough [Unknown]
  - Pain [Unknown]
  - Product dose omission issue [Unknown]
